FAERS Safety Report 25980041 (Version 1)
Quarter: 2025Q4

REPORT INFORMATION
  Report Type: Spontaneous
  Country: US (occurrence: None)
  Receive Date: 20251029
  Receipt Date: 20251029
  Transmission Date: 20260117
  Serious: Yes (Other)
  Sender: FDA-CTU
  Company Number: None

PATIENT
  Age: 18 Year
  Sex: Female
  Weight: 81 kg

DRUGS (3)
  1. FEMICLEAR VAGINAL [Suspect]
     Active Substance: CALENDULA OFFICINALIS FLOWERING TOP\MELALEUCA CAJUPUTI LEAF OIL\OLEA EUROPAEA FRUIT VOLATILE OIL
     Indication: Fungal infection
     Dosage: OTHER QUANTITY : 2 U USE HALF TUBE;?FREQUENCY : AT BEDTIME;?
     Route: 067
     Dates: start: 20251028, end: 20251029
  2. UNSPECIFIED INGREDIENT [Concomitant]
     Active Substance: UNSPECIFIED INGREDIENT
  3. Once daily women^s vitamin [Concomitant]

REACTIONS (2)
  - Pain [None]
  - Application site pain [None]

NARRATIVE: CASE EVENT DATE: 20251029
